FAERS Safety Report 17543641 (Version 2)
Quarter: 2020Q2

REPORT INFORMATION
  Report Type: Spontaneous
  Country: US (occurrence: US)
  Receive Date: 20200316
  Receipt Date: 20200611
  Transmission Date: 20200713
  Serious: No
  Sender: FDA-Public Use
  Company Number: US-AMGEN-USASP2020041092

PATIENT
  Age: 89 Year
  Sex: Male

DRUGS (5)
  1. CONEX [AMLODIPINE BESILATE;VALSARTAN] [Concomitant]
     Indication: HYPERTENSION
     Dosage: UNK
  2. HYDRALAZINE [Concomitant]
     Active Substance: HYDRALAZINE HYDROCHLORIDE
     Indication: HYPERTENSION
     Dosage: UNK
  3. PROCRIT [Suspect]
     Active Substance: ERYTHROPOIETIN
     Indication: PRODUCT USED FOR UNKNOWN INDICATION
     Dosage: 20000 UNIT
     Route: 030
     Dates: start: 202002
  4. ELIQUIS [Concomitant]
     Active Substance: APIXABAN
     Dosage: 2.5 MILLIGRAM, BID
  5. PROCRIT [Suspect]
     Active Substance: ERYTHROPOIETIN
     Dosage: 40000 UNIT
     Route: 030
     Dates: start: 2020

REACTIONS (3)
  - Blood pressure increased [Recovered/Resolved]
  - Incorrect route of product administration [Unknown]
  - Heart rate increased [Recovered/Resolved]

NARRATIVE: CASE EVENT DATE: 2020
